FAERS Safety Report 17229077 (Version 1)
Quarter: 2020Q1

REPORT INFORMATION
  Report Type: Report from Study
  Country: JP (occurrence: JP)
  Receive Date: 20200103
  Receipt Date: 20200103
  Transmission Date: 20200409
  Serious: Yes (Hospitalization)
  Sender: FDA-Public Use
  Company Number: JP-TEVA-2019-JP-1162888

PATIENT
  Age: 57 Year
  Sex: Female

DRUGS (5)
  1. CARBOPLATIN. [Suspect]
     Active Substance: CARBOPLATIN
     Indication: ENDOMETRIAL CANCER
     Dosage: 6 CYCLES
     Route: 065
  2. PACLITAXEL. [Suspect]
     Active Substance: PACLITAXEL
     Indication: ENDOMETRIAL CANCER
     Dosage: 6 CYCLES
     Route: 065
  3. FLOMOXEF SODIUM [Suspect]
     Active Substance: FLOMOXEF SODIUM
     Indication: ANTIBIOTIC PROPHYLAXIS
     Route: 065
  4. IRINOTECAN [Suspect]
     Active Substance: IRINOTECAN
     Indication: ENDOMETRIAL CANCER
     Dosage: 6 CYCLES
     Route: 065
  5. CISPLATIN. [Suspect]
     Active Substance: CISPLATIN
     Indication: ENDOMETRIAL CANCER
     Dosage: 6 CYCLES
     Route: 065

REACTIONS (2)
  - Clostridium difficile colitis [Unknown]
  - Clostridium difficile infection [Recovered/Resolved]
